FAERS Safety Report 21350570 (Version 1)
Quarter: 2022Q3

REPORT INFORMATION
  Report Type: Spontaneous
  Country: US (occurrence: US)
  Receive Date: 20220919
  Receipt Date: 20220919
  Transmission Date: 20221027
  Serious: Yes (Other)
  Sender: FDA-Public Use
  Company Number: US-PFIZER INC-202200035692

PATIENT
  Age: 74 Year
  Sex: Female

DRUGS (1)
  1. EUCRISA [Suspect]
     Active Substance: CRISABOROLE
     Dosage: UNK, 2X/DAY (SMALL AMOUNT TO SKIN ARMS + LEGS TWICE DAILY AS NEEDED)
     Route: 061

REACTIONS (3)
  - Limb operation [Unknown]
  - Skin reaction [Unknown]
  - Mobility decreased [Unknown]
